FAERS Safety Report 6661442-7 (Version None)
Quarter: 2010Q1

REPORT INFORMATION
  Report Type: 
  Country: None (occurrence: None)
  Receive Date: 20100329
  Receipt Date: 20100318
  Transmission Date: 20100710
  Serious: Yes (Other)
  Sender: FDA-Public Use
  Company Number: 8042962

PATIENT
  Sex: Female

DRUGS (4)
  1. KEPPRA [Suspect]
     Indication: EPILEPSY
     Dosage: (1000 MG QD, DOSE FREQ.: DAILY ORAL)
     Route: 048
     Dates: start: 20081001
  2. FOLIC ACID [Concomitant]
  3. VITAMIN TAB [Concomitant]
  4. SYNTHROID [Concomitant]

REACTIONS (2)
  - DRUG EXPOSURE DURING PREGNANCY [None]
  - THYROID CANCER [None]
